FAERS Safety Report 12379043 (Version 1)
Quarter: 2016Q2

REPORT INFORMATION
  Report Type: Spontaneous
  Country: US (occurrence: US)
  Receive Date: 20160517
  Receipt Date: 20160517
  Transmission Date: 20160815
  Serious: No
  Sender: FDA-Public Use
  Company Number: US-009507513-1605USA006244

PATIENT
  Sex: Female

DRUGS (1)
  1. NEXPLANON [Suspect]
     Active Substance: ETONOGESTREL
     Indication: CONTRACEPTION
     Dosage: 1 IMPLANT / 3 YEARS
     Route: 059
     Dates: start: 20140206

REACTIONS (3)
  - Device kink [Unknown]
  - Product quality issue [Unknown]
  - Limb discomfort [Unknown]
